FAERS Safety Report 7610644-1 (Version None)
Quarter: 2011Q3

REPORT INFORMATION
  Report Type: 
  Country: None (occurrence: None)
  Receive Date: 20110707
  Receipt Date: 20110624
  Transmission Date: 20111222
  Serious: Yes (Hospitalization, Disabling)
  Sender: FDA-Public Use
  Company Number: GER/UKI/11/0018827

PATIENT
  Age: 73 Year
  Sex: Female
  Weight: 54.4 kg

DRUGS (8)
  1. ADIPINE MR/NIFELEASE MR (NEFEDIPINE) [Concomitant]
  2. ALENDRONIC ACID [Concomitant]
  3. AMITRIPTYLINE HCL [Concomitant]
  4. LEVOFLOXACIN [Suspect]
     Indication: CHRONIC OBSTRUCTIVE PULMONARY DISEASE
     Dosage: 500 MG, 1 IN 1 D, ORAL
     Route: 048
     Dates: start: 20110512, end: 20110513
  5. SERETIDE [Concomitant]
  6. CITALOPRAM HYDROBROMIDE [Concomitant]
  7. TIOTROPIUM BROMIDE [Concomitant]
  8. VENTOLIN [Concomitant]

REACTIONS (3)
  - TENDONITIS [None]
  - TENDON RUPTURE [None]
  - ABASIA [None]
